FAERS Safety Report 9485093 (Version 1)
Quarter: 2013Q3

REPORT INFORMATION
  Report Type: Spontaneous
  Country: US (occurrence: US)
  Receive Date: 20130828
  Receipt Date: 20130828
  Transmission Date: 20140515
  Serious: No
  Sender: FDA-Public Use
  Company Number: US-ABBOTT-13P-163-1119078-00

PATIENT
  Sex: Male
  Weight: 81.72 kg

DRUGS (3)
  1. ANDROGEL [Suspect]
     Indication: BLOOD TESTOSTERONE DECREASED
     Dosage: TWO PUMPS PER DAY
     Dates: start: 2012, end: 201306
  2. DIAZEPAM [Concomitant]
     Indication: ANXIETY
  3. LEXAPRO [Concomitant]
     Indication: ANXIETY

REACTIONS (6)
  - Arthralgia [Not Recovered/Not Resolved]
  - Hot flush [Not Recovered/Not Resolved]
  - Asthenia [Not Recovered/Not Resolved]
  - Libido decreased [Not Recovered/Not Resolved]
  - Hyperhidrosis [Unknown]
  - Irritability [Unknown]
